FAERS Safety Report 7967362-X (Version None)
Quarter: 2011Q4

REPORT INFORMATION
  Report Type: 
  Country: None (occurrence: None)
  Receive Date: 20111209
  Receipt Date: 20111206
  Transmission Date: 20120403
  Serious: Yes (Other)
  Sender: FDA-Public Use
  Company Number: US-PFIZER INC-2011297630

PATIENT
  Sex: Female

DRUGS (1)
  1. CHANTIX [Suspect]
     Dosage: UNK
     Dates: start: 20090401

REACTIONS (9)
  - ANXIETY [None]
  - AGGRESSION [None]
  - DEPRESSION [None]
  - DISTURBANCE IN ATTENTION [None]
  - ALCOHOL ABUSE [None]
  - INJURY [None]
  - SUICIDE ATTEMPT [None]
  - MENTAL DISORDER [None]
  - INSOMNIA [None]
